FAERS Safety Report 5591747-2 (Version None)
Quarter: 2008Q1

REPORT INFORMATION
  Report Type: 
  Country: None (occurrence: None)
  Receive Date: 20080115
  Receipt Date: 20080104
  Transmission Date: 20080703
  Serious: Yes (Death, Hospitalization)
  Sender: FDA-Public Use
  Company Number: US-JNJFOC-20080102114

PATIENT
  Age: 52 Year
  Sex: Male

DRUGS (9)
  1. IBUPROFEN [Suspect]
     Indication: SUICIDE ATTEMPT
     Route: 048
  2. PROPAFENONE HCL [Suspect]
     Indication: SUICIDE ATTEMPT
     Route: 048
  3. CARDIAC GLYCOSIDE [Suspect]
     Indication: SUICIDE ATTEMPT
     Route: 048
  4. TEMAZEPAM [Suspect]
     Indication: SUICIDE ATTEMPT
     Route: 048
  5. OXAZEPAM [Suspect]
     Indication: SUICIDE ATTEMPT
     Route: 048
  6. DIURETIC [Suspect]
     Indication: SUICIDE ATTEMPT
     Route: 048
  7. WARFARIN SODIUM [Suspect]
     Indication: SUICIDE ATTEMPT
     Route: 048
  8. CARVEDILOL [Suspect]
     Indication: SUICIDE ATTEMPT
     Route: 048
  9. OPIOID/ACETAMINOPHEN [Suspect]
     Indication: SUICIDE ATTEMPT
     Route: 048

REACTIONS (1)
  - DRUG TOXICITY [None]
